FAERS Safety Report 8543406-1 (Version None)
Quarter: 2012Q3

REPORT INFORMATION
  Report Type: 
  Country: None (occurrence: None)
  Receive Date: 20120727
  Receipt Date: 20120717
  Transmission Date: 20120928
  Serious: No
  Sender: FDA-Public Use
  Company Number: PHEH2012US014622

PATIENT
  Sex: Male

DRUGS (12)
  1. ALLEGRA [Concomitant]
  2. TASIGNA [Suspect]
     Indication: CHRONIC MYELOID LEUKAEMIA
     Dosage: 400 MG, BID
     Route: 048
  3. AMIODARONE HYDROCHLORIDE [Concomitant]
  4. LISINOPRIL [Concomitant]
  5. ASPIRIN [Concomitant]
  6. ZOLOFT [Concomitant]
  7. OMEPRAZOLE [Concomitant]
  8. METOPROLOL SUCCINATE [Concomitant]
  9. DOCUSATE [Concomitant]
  10. CREDTOR [Concomitant]
  11. WARFARIN SODIUM [Concomitant]
  12. CHERATUSSIN [Concomitant]

REACTIONS (3)
  - BONE PAIN [None]
  - RASH [None]
  - ALOPECIA [None]
